FAERS Safety Report 19098722 (Version 1)
Quarter: 2021Q2

REPORT INFORMATION
  Report Type: Spontaneous
  Country: ES (occurrence: ES)
  Receive Date: 20210406
  Receipt Date: 20210406
  Transmission Date: 20210717
  Serious: Yes (Life-Threatening)
  Sender: FDA-Public Use
  Company Number: NVSC2021ES077257

PATIENT
  Age: 72 Year
  Sex: Female

DRUGS (4)
  1. LORAZEPAM CINFA [Concomitant]
     Active Substance: LORAZEPAM
     Indication: INSOMNIA
     Dosage: 1 MG, Q24H (1 MG COMPRIMIDOS EFG, 50 COMPRIMIDOS)
     Route: 048
     Dates: start: 20100901
  2. ATORVASTATIN [Suspect]
     Active Substance: ATORVASTATIN
     Indication: HYPERLIPIDAEMIA
     Dosage: UNK
     Route: 048
     Dates: start: 20210320, end: 20210326
  3. LORATADINA CINFA [Concomitant]
     Indication: HYPERSENSITIVITY
     Dosage: UNK (10 MG COMPRIMIDOS EFG, 20 COMPRIMIDOS)
     Route: 065
  4. TORASEMIDA NORMON [Concomitant]
     Indication: PERIPHERAL VENOUS DISEASE
     Dosage: 2.5 MG, Q24H (2.5 MG COMPRIMIDOS EFG, 30 COMPRIMIDOS)
     Route: 048
     Dates: start: 20120725

REACTIONS (3)
  - Oropharyngeal pain [Recovered/Resolved]
  - Tongue oedema [Recovered/Resolved]
  - Throat irritation [Recovered/Resolved]

NARRATIVE: CASE EVENT DATE: 20210320
